FAERS Safety Report 6856001-7 (Version None)
Quarter: 2010Q3

REPORT INFORMATION
  Report Type: 
  Country: None (occurrence: None)
  Receive Date: 20100716
  Receipt Date: 20100716
  Transmission Date: 20110219
  Serious: Yes (Hospitalization)
  Sender: FDA-Public Use
  Company Number: None

PATIENT
  Age: 83 Year
  Sex: Female
  Weight: 74.3899 kg

DRUGS (1)
  1. ADVAIR DISKUS 500/50 [Suspect]
     Indication: ASTHMA
     Dosage: 2X DAILY INHALE
     Route: 055
     Dates: start: 20100524, end: 20100619

REACTIONS (2)
  - COUGH [None]
  - PYREXIA [None]
